FAERS Safety Report 5639305-5 (Version None)
Quarter: 2008Q1

REPORT INFORMATION
  Report Type: 
  Country: None (occurrence: None)
  Receive Date: 20080226
  Receipt Date: 20080130
  Transmission Date: 20080703
  Serious: No
  Sender: FDA-Public Use
  Company Number: US-BOEHRINGER INGELHEIM GMBH, GERMANY-2008-BP-01482BP

PATIENT
  Age: 40 Year
  Sex: Male

DRUGS (2)
  1. MICARDIS [Suspect]
     Indication: HYPERTENSION
     Route: 048
     Dates: start: 20080101
  2. NORVASC [Concomitant]

REACTIONS (2)
  - PALPITATIONS [None]
  - VENTRICULAR EXTRASYSTOLES [None]
